FAERS Safety Report 9812740 (Version 1)
Quarter: 2014Q1

REPORT INFORMATION
  Report Type: Spontaneous
  Country: US (occurrence: US)
  Receive Date: 20140110
  Receipt Date: 20140110
  Transmission Date: 20141002
  Serious: Yes (Other)
  Sender: FDA-Public Use
  Company Number: USRB06159713

PATIENT
  Age: 66 Year
  Sex: Female

DRUGS (2)
  1. MUCINEX FAST MAX NIGHT TIME COLD + FLU LIQUID [Suspect]
     Indication: NASOPHARYNGITIS
     Dosage: TOOK 2 CAPLETS 1 TIME ONLY, PATIENT LAST TOOK DRUG ON 25DEC2013
     Route: 048
  2. MUCINEX FAST MAX NIGHT TIME COLD + FLU LIQUID [Suspect]
     Indication: INCREASED UPPER AIRWAY SECRETION
     Dosage: TOOK 2 CAPLETS 1 TIME ONLY, PATIENT LAST TOOK DRUG ON 25DEC2013
     Route: 048

REACTIONS (3)
  - Apnoea [Recovered/Resolved]
  - Vocal cord disorder [Recovered/Resolved]
  - Aphonia [Recovered/Resolved]
